FAERS Safety Report 10412773 (Version 3)
Quarter: 2014Q4

REPORT INFORMATION
  Report Type: Spontaneous
  Country: US (occurrence: None)
  Receive Date: 20140825
  Receipt Date: 20141021
  Transmission Date: 20150528
  Serious: Yes (Other)
  Sender: FDA-Public Use
  Company Number: 2014SA109397

PATIENT
  Age: 40 Year
  Sex: Female
  Weight: 89.8 kg

DRUGS (7)
  1. ICY HOT [Suspect]
     Active Substance: MENTHOL\METHYL SALICYLATE
     Indication: BACK PAIN
     Dosage: ;UNKNOWN; TOPICAL
     Route: 061
     Dates: start: 20140809
  2. VITAMIN D [Concomitant]
     Active Substance: CHOLECALCIFEROL
  3. CYMBALTA [Concomitant]
     Active Substance: DULOXETINE HYDROCHLORIDE
  4. FOLIC ACID. [Concomitant]
     Active Substance: FOLIC ACID
  5. ICY HOT [Suspect]
     Active Substance: MENTHOL\METHYL SALICYLATE
     Indication: PRODUCT USED FOR UNKNOWN INDICATION
     Dosage: ;UNKNOWN; TOPICAL
     Route: 061
     Dates: start: 20140809
  6. GABAPENTIN. [Concomitant]
     Active Substance: GABAPENTIN
  7. LOTREL [Concomitant]
     Active Substance: AMLODIPINE BESYLATE\BENAZEPRIL HYDROCHLORIDE

REACTIONS (5)
  - Application site scab [None]
  - Skin abrasion [None]
  - Application site burn [None]
  - Back pain [None]
  - Hyperhidrosis [None]
